FAERS Safety Report 12341104 (Version 1)
Quarter: 2016Q2

REPORT INFORMATION
  Report Type: Spontaneous
  Country: US (occurrence: None)
  Receive Date: 20160505
  Receipt Date: 20160505
  Transmission Date: 20160815
  Serious: No
  Sender: FDA-Public Use
  Company Number: None

PATIENT
  Sex: Male

DRUGS (2)
  1. MAGNESIUM CITRATE. [Suspect]
     Active Substance: MAGNESIUM CITRATE
  2. COLACE [Suspect]
     Active Substance: DOCUSATE SODIUM

REACTIONS (3)
  - Abdominal pain upper [None]
  - Therapy change [None]
  - No therapeutic response [None]
